FAERS Safety Report 6221721-4 (Version None)
Quarter: 2009Q2

REPORT INFORMATION
  Report Type: 
  Country: None (occurrence: None)
  Receive Date: 20090608
  Receipt Date: 20090521
  Transmission Date: 20091009
  Serious: Yes (Other)
  Sender: FDA-Public Use
  Company Number: 2007S1003174

PATIENT
  Age: 63 Year
  Sex: Female
  Weight: 63.5036 kg

DRUGS (15)
  1. PHOSPHOSODA FLAVOR NOT SPECIFIED [Suspect]
     Indication: COLONOSCOPY
     Dosage: PO
     Route: 048
     Dates: start: 20050516, end: 20050516
  2. HYDROCHLOROTHIAZIDE [Concomitant]
  3. NORVASC [Concomitant]
  4. LIPITOR [Concomitant]
  5. COZAAR [Concomitant]
  6. CLIMARA [Concomitant]
  7. ADVAIR HFA [Concomitant]
  8. CALCIUM [Concomitant]
  9. ASPIRIN [Concomitant]
  10. ALEVE [Concomitant]
  11. ESTRA [Concomitant]
  12. VERSED [Concomitant]
  13. FENTANYL [Concomitant]
  14. ZITHROMAX [Concomitant]
  15. PREDNISONE [Concomitant]

REACTIONS (11)
  - ANAEMIA [None]
  - BLOOD ERYTHROPOIETIN DECREASED [None]
  - BLOOD PHOSPHORUS INCREASED [None]
  - BLOOD PRESSURE INCREASED [None]
  - DIABETIC NEPHROPATHY [None]
  - HEADACHE [None]
  - HYPOVOLAEMIA [None]
  - NEPHROCALCINOSIS [None]
  - RENAL FAILURE ACUTE [None]
  - RENAL FAILURE CHRONIC [None]
  - TUBULOINTERSTITIAL NEPHRITIS [None]
